FAERS Safety Report 5729824-5 (Version None)
Quarter: 2008Q2

REPORT INFORMATION
  Report Type: 
  Country: None (occurrence: None)
  Receive Date: 20080501
  Receipt Date: 20080421
  Transmission Date: 20081010
  Serious: Yes (Hospitalization)
  Sender: FDA-Public Use
  Company Number: 000729

PATIENT
  Age: 54 Year
  Sex: Male

DRUGS (5)
  1. BUSULFEX [Suspect]
     Indication: STEM CELL TRANSPLANT
     Dosage: INTRAVENOUS
     Route: 042
     Dates: start: 20070923, end: 20070924
  2. FLUDARABINE PHOSPHATE [Concomitant]
  3. PHENYTOIN [Concomitant]
  4. LENOGRASTIM (LENOGRASTIM) [Concomitant]
  5. TACROLIMUS HYDRATE (TACROLIMUS) [Concomitant]

REACTIONS (6)
  - ACUTE GRAFT VERSUS HOST DISEASE [None]
  - DIARRHOEA [None]
  - LOCALISED INFECTION [None]
  - MALAISE [None]
  - STAPHYLOCOCCAL INFECTION [None]
  - STOMATITIS [None]
